FAERS Safety Report 8043019-4 (Version None)
Quarter: 2012Q1

REPORT INFORMATION
  Report Type: 
  Country: None (occurrence: None)
  Receive Date: 20120112
  Receipt Date: 20120106
  Transmission Date: 20120608
  Serious: Yes (Other)
  Sender: FDA-Public Use
  Company Number: PHEH2012US000745

PATIENT
  Sex: Female

DRUGS (3)
  1. TRILEPTAL [Suspect]
     Dosage: 300 MG, BID
  2. LEUCOVORIN CALCIUM [Concomitant]
  3. LEVOTHYROXINE SODIUM [Concomitant]

REACTIONS (34)
  - RHINORRHOEA [None]
  - ABDOMINAL DISCOMFORT [None]
  - AUTOIMMUNE DISORDER [None]
  - EMOTIONAL DISTRESS [None]
  - LIGAMENT SPRAIN [None]
  - EAR PAIN [None]
  - URINARY TRACT INFECTION [None]
  - THINKING ABNORMAL [None]
  - ANXIETY [None]
  - MUSCLE STRAIN [None]
  - ASTHENIA [None]
  - VAGINAL INFLAMMATION [None]
  - BLOOD INSULIN ABNORMAL [None]
  - PRURITUS [None]
  - DISTURBANCE IN ATTENTION [None]
  - EYE MOVEMENT DISORDER [None]
  - AMNESIA [None]
  - THYROID DISORDER [None]
  - EXPRESSIVE LANGUAGE DISORDER [None]
  - VIRAL INFECTION [None]
  - WEIGHT INCREASED [None]
  - AGGRESSION [None]
  - HYPERSENSITIVITY [None]
  - MYALGIA [None]
  - PSYCHOMOTOR SKILLS IMPAIRED [None]
  - UPPER RESPIRATORY TRACT INFECTION [None]
  - SPEECH DISORDER [None]
  - FEELING ABNORMAL [None]
  - COORDINATION ABNORMAL [None]
  - NERVOUSNESS [None]
  - AGITATION [None]
  - SINUSITIS [None]
  - DRY MOUTH [None]
  - NAUSEA [None]
